FAERS Safety Report 7211725-7 (Version None)
Quarter: 2011Q1

REPORT INFORMATION
  Report Type: 
  Country: None (occurrence: None)
  Receive Date: 20110105
  Receipt Date: 20101231
  Transmission Date: 20110831
  Serious: Yes (Other)
  Sender: FDA-Public Use
  Company Number: GB-PFIZER INC-2011000284

PATIENT
  Age: 75 Year
  Sex: Female

DRUGS (8)
  1. OFLOXACIN [Suspect]
     Indication: KERATITIS FUNGAL
  2. FLUCONAZOLE [Suspect]
     Indication: KERATITIS FUNGAL
     Dosage: 0.2 %, UNK
     Route: 061
  3. VORICONAZOLE [Suspect]
     Indication: KERATITIS FUNGAL
     Dosage: 400MG LOADING FOLLOWED BY 200 MG TWICE DAILY
     Route: 048
  4. CEFUROXIME [Suspect]
     Indication: KERATITIS FUNGAL
  5. AMPHOTERICIN B [Suspect]
     Indication: PROPHYLAXIS
  6. GENTAMICIN [Suspect]
     Indication: KERATITIS FUNGAL
     Dosage: 1.5 %, UNK
  7. DEXAMETHASONE [Suspect]
     Indication: PROPHYLAXIS
     Dosage: 0.1 %, 4X/DAY
     Route: 061
  8. ITRACONAZOLE [Suspect]
     Indication: KERATITIS FUNGAL
     Dosage: 100 MG, 2X/DAY
     Route: 048

REACTIONS (1)
  - KERATITIS FUNGAL [None]
